FAERS Safety Report 9679026 (Version 1)
Quarter: 2013Q4

REPORT INFORMATION
  Report Type: Spontaneous
  Country: US (occurrence: US)
  Receive Date: 20131108
  Receipt Date: 20131108
  Transmission Date: 20140711
  Serious: Yes (Other)
  Sender: FDA-Public Use
  Company Number: US-PFIZER INC-2013319066

PATIENT
  Sex: Female

DRUGS (3)
  1. NEURONTIN [Suspect]
     Dosage: UNK
  2. LORAZEPAM [Suspect]
     Indication: ANXIETY
     Dosage: UNK
  3. CYMBALTA [Suspect]
     Indication: DEPRESSION
     Dosage: UNK

REACTIONS (12)
  - Convulsion [Unknown]
  - Rectal haemorrhage [Unknown]
  - Mental impairment [Unknown]
  - Malaise [Unknown]
  - Coordination abnormal [Unknown]
  - Infection [Unknown]
  - Somnolence [Unknown]
  - Fatigue [Unknown]
  - Pyrexia [Unknown]
  - Amnesia [Unknown]
  - Tremor [Unknown]
  - Diplopia [Unknown]
